FAERS Safety Report 5262196-1 (Version None)
Quarter: 2007Q1

REPORT INFORMATION
  Report Type: 
  Country: None (occurrence: None)
  Receive Date: 20070311
  Receipt Date: 20070228
  Transmission Date: 20070707
  Serious: Yes (Disabling)
  Sender: FDA-Public Use
  Company Number: 2006UW17237

PATIENT
  Age: 38 Year
  Sex: Male
  Weight: 104.5 kg

DRUGS (7)
  1. SEROQUEL [Suspect]
     Indication: SCHIZOPHRENIA
     Route: 048
     Dates: start: 19970101, end: 20060301
  2. SEROQUEL [Suspect]
     Indication: DEPRESSION
     Route: 048
     Dates: start: 19970101, end: 20060301
  3. ABILIFY [Suspect]
     Dates: start: 19990101
  4. CLOZARIL [Suspect]
     Dates: start: 19990101
  5. NAVANE [Suspect]
     Dates: start: 20000101
  6. RISPERDAL [Suspect]
     Dates: start: 19990101
  7. XANAX [Concomitant]
     Dates: start: 20050101

REACTIONS (7)
  - BLOOD CHOLESTEROL INCREASED [None]
  - BLOOD TRIGLYCERIDES INCREASED [None]
  - DIABETES MELLITUS NON-INSULIN-DEPENDENT [None]
  - HYPERLIPIDAEMIA [None]
  - INJURY [None]
  - PANCREATITIS [None]
  - RHEUMATOID ARTHRITIS [None]
